FAERS Safety Report 13795598 (Version 1)
Quarter: 2017Q3

REPORT INFORMATION
  Report Type: Spontaneous
  Country: US (occurrence: US)
  Receive Date: 20170726
  Receipt Date: 20170726
  Transmission Date: 20171127
  Serious: No
  Sender: FDA-Public Use
  Company Number: US-NEUROCRINE BIOSCIENCES INC.-2017NBI00411

PATIENT
  Age: 60 Year
  Sex: Female
  Weight: 55.39 kg

DRUGS (16)
  1. CLONAZEPAM. [Concomitant]
     Active Substance: CLONAZEPAM
  2. RESTORIL [Concomitant]
     Active Substance: TEMAZEPAM
  3. VITAMIN D2 [Concomitant]
     Active Substance: ERGOCALCIFEROL
  4. INGREZZA [Suspect]
     Active Substance: VALBENAZINE
     Indication: TARDIVE DYSKINESIA
     Route: 048
     Dates: start: 20170612, end: 201706
  5. NEURONTIN [Concomitant]
     Active Substance: GABAPENTIN
  6. VITAMIN B [Concomitant]
     Active Substance: VITAMIN B
  7. MULTIVITAMIN [Concomitant]
     Active Substance: VITAMINS
  8. VERAPAMIL [Concomitant]
     Active Substance: VERAPAMIL HYDROCHLORIDE
  9. LISINOPRIL. [Concomitant]
     Active Substance: LISINOPRIL
  10. ARTANE [Concomitant]
     Active Substance: TRIHEXYPHENIDYL HYDROCHLORIDE
  11. MAGNESIUM [Concomitant]
     Active Substance: MAGNESIUM
  12. INGREZZA [Suspect]
     Active Substance: VALBENAZINE
     Dosage: AT BEDTIME
     Route: 048
     Dates: start: 201706
  13. INDERAL [Concomitant]
     Active Substance: PROPRANOLOL HYDROCHLORIDE
  14. AMANTADINE. [Concomitant]
     Active Substance: AMANTADINE HYDROCHLORIDE
  15. CARBAMAZEPINE. [Concomitant]
     Active Substance: CARBAMAZEPINE
  16. MELATONIN [Concomitant]
     Active Substance: MELATONIN

REACTIONS (4)
  - Gait disturbance [Not Recovered/Not Resolved]
  - Dizziness [Not Recovered/Not Resolved]
  - Constipation [Unknown]
  - Drug effect decreased [Not Recovered/Not Resolved]

NARRATIVE: CASE EVENT DATE: 201706
